FAERS Safety Report 8910743 (Version 1)
Quarter: 2012Q4

REPORT INFORMATION
  Report Type: 
  Country: US (occurrence: US)
  Receive Date: 20121116
  Receipt Date: 20121116
  Transmission Date: 20130627
  Serious: No
  Sender: FDA-Public Use
  Company Number: US-PFIZER INC-2012283414

PATIENT
  Age: 63 Year
  Sex: Female
  Weight: 70 kg

DRUGS (12)
  1. VFEND [Suspect]
     Indication: FUNGAL MENINGITIS
     Dosage: 400 mg, 2x/day
     Route: 042
     Dates: start: 20121004, end: 2012
  2. VFEND [Suspect]
     Dosage: 300 mg, 2x/day
     Route: 042
     Dates: start: 2012
  3. METHYLPREDNISOLONE ACETATE [Suspect]
     Dosage: once
     Route: 008
     Dates: start: 2012
  4. GABAPENTIN [Concomitant]
     Dosage: UNK
  5. PROTONIX [Concomitant]
     Dosage: UNK
  6. COLACE [Concomitant]
     Dosage: UNK
  7. FERROUS SULFATE [Concomitant]
     Dosage: UNK
  8. MEROPENEM [Concomitant]
     Dosage: UNK
  9. MAGNESIUM [Concomitant]
     Dosage: UNK
  10. LACTOBACILLUS [Concomitant]
     Dosage: UNK
  11. THIAMINE [Concomitant]
     Dosage: UNK
  12. AMBIEN [Concomitant]
     Dosage: UNK

REACTIONS (2)
  - Drug level increased [Unknown]
  - Haemoglobin abnormal [Unknown]
